FAERS Safety Report 6632423-4 (Version None)
Quarter: 2010Q1

REPORT INFORMATION
  Report Type: 
  Country: None (occurrence: None)
  Receive Date: 20100312
  Receipt Date: 20090629
  Transmission Date: 20100710
  Serious: Yes (Other)
  Sender: FDA-Public Use
  Company Number: 2008BI025413

PATIENT
  Age: 32 Year
  Sex: Female

DRUGS (2)
  1. AVONEX [Suspect]
     Indication: MULTIPLE SCLEROSIS
     Route: 030
     Dates: start: 19990310, end: 20040908
  2. AVONEX [Suspect]
     Route: 030
     Dates: start: 20081027, end: 20090331

REACTIONS (1)
  - ABORTION SPONTANEOUS [None]
